FAERS Safety Report 10345169 (Version 2)
Quarter: 2014Q3

REPORT INFORMATION
  Report Type: Spontaneous
  Country: US (occurrence: US)
  Receive Date: 20140728
  Receipt Date: 20140912
  Transmission Date: 20150326
  Serious: Yes (Hospitalization)
  Sender: FDA-Public Use
  Company Number: US-BAYER-2014-110599

PATIENT
  Age: 21 Year
  Sex: Female
  Weight: 94.79 kg

DRUGS (2)
  1. MIRENA [Suspect]
     Active Substance: LEVONORGESTREL
     Dosage: 20 MCG/24HR, CONT
     Route: 015
     Dates: start: 20120709, end: 20120802
  2. INDOCIN [Concomitant]
     Active Substance: INDOMETHACIN\INDOMETHACIN SODIUM

REACTIONS (6)
  - Uterine perforation [None]
  - Emotional distress [None]
  - Device issue [None]
  - Injury [None]
  - Pelvic pain [None]
  - Abdominal pain lower [None]

NARRATIVE: CASE EVENT DATE: 201207
